FAERS Safety Report 6478556-7 (Version None)
Quarter: 2009Q4

REPORT INFORMATION
  Report Type: 
  Country: None (occurrence: None)
  Receive Date: 20091207
  Receipt Date: 20091125
  Transmission Date: 20100525
  Serious: Yes (Other)
  Sender: FDA-Public Use
  Company Number: US-ELI_LILLY_AND_COMPANY-US200912001159

PATIENT
  Sex: Female

DRUGS (10)
  1. FORTEO [Suspect]
     Dosage: 20 UG, DAILY (1/D)
     Route: 065
     Dates: start: 20090801
  2. SYNTHROID [Concomitant]
  3. STRATTERA [Concomitant]
  4. BENICAR [Concomitant]
  5. SERTRALINE HYDROCHLORIDE [Concomitant]
  6. POLYGLYCOLIC ACID [Concomitant]
  7. VITAMIN B-12 [Concomitant]
  8. CALCIUM WITH VITAMIN D [Concomitant]
  9. MULTI-VITAMIN [Concomitant]
  10. BABY ASPIRIN [Concomitant]

REACTIONS (1)
  - MYOCARDIAL INFARCTION [None]
